FAERS Safety Report 5843375-9 (Version None)
Quarter: 2008Q3

REPORT INFORMATION
  Report Type: 
  Country: None (occurrence: None)
  Receive Date: 20080812
  Receipt Date: 20080812
  Transmission Date: 20090109
  Serious: Yes (Life-Threatening, Hospitalization)
  Sender: FDA-Public Use
  Company Number: None

PATIENT
  Age: 56 Year
  Sex: Male
  Weight: 78 kg

DRUGS (6)
  1. ERBITUX [Suspect]
     Indication: COLON CANCER METASTATIC
     Dates: start: 20080718, end: 20080718
  2. PLAVIX [Concomitant]
  3. ASPIRIN [Concomitant]
  4. AMIODARONE [Concomitant]
  5. LIPITOR [Concomitant]
  6. METOPROLOL SUCCINATE [Concomitant]

REACTIONS (5)
  - ACUTE MYOCARDIAL INFARCTION [None]
  - ANAPHYLACTIC SHOCK [None]
  - RASH ERYTHEMATOUS [None]
  - RASH GENERALISED [None]
  - RESPIRATORY DISTRESS [None]
